FAERS Safety Report 25948204 (Version 1)
Quarter: 2025Q4

REPORT INFORMATION
  Report Type: Spontaneous
  Country: EU (occurrence: EU)
  Receive Date: 20251022
  Receipt Date: 20251022
  Transmission Date: 20260117
  Serious: Yes (Other)
  Sender: GILEAD
  Company Number: EU-GILEAD-2025-0732774

PATIENT
  Age: 42 Year
  Sex: Male

DRUGS (1)
  1. BIKTARVY [Suspect]
     Active Substance: BICTEGRAVIR SODIUM\EMTRICITABINE\TENOFOVIR ALAFENAMIDE FUMARATE
     Indication: HIV infection
     Dosage: UNK (1X1 TABLE)
     Route: 065
     Dates: start: 20230831

REACTIONS (8)
  - Pericarditis [Unknown]
  - Septic shock [Unknown]
  - Acute myocardial infarction [Unknown]
  - Anaemia [Unknown]
  - Pneumonia [Unknown]
  - Sepsis [Unknown]
  - Pulmonary embolism [Unknown]
  - Hypertension [Unknown]

NARRATIVE: CASE EVENT DATE: 20230901
